APPROVED DRUG PRODUCT: PEMOLINE
Active Ingredient: PEMOLINE
Strength: 18.75MG
Dosage Form/Route: TABLET;ORAL
Application: A075030 | Product #003
Applicant: TEVA PHARMACEUTICALS USA
Approved: Feb 22, 2000 | RLD: No | RS: No | Type: DISCN